FAERS Safety Report 17727344 (Version 1)
Quarter: 2020Q2

REPORT INFORMATION
  Report Type: Spontaneous
  Country: US (occurrence: US)
  Receive Date: 20200430
  Receipt Date: 20200430
  Transmission Date: 20200714
  Serious: No
  Sender: FDA-Public Use
  Company Number: US-AMGEN INC.-USASP2020069377

PATIENT
  Age: 28 Year
  Sex: Female

DRUGS (2)
  1. AIMOVIG [Suspect]
     Active Substance: ERENUMAB-AOOE
     Dosage: 140 MILLIGRAM
     Route: 065
     Dates: start: 20200426
  2. AIMOVIG [Suspect]
     Active Substance: ERENUMAB-AOOE
     Indication: PRODUCT USED FOR UNKNOWN INDICATION
     Dosage: 70 MILLIGRAM
     Route: 065
     Dates: start: 2019

REACTIONS (4)
  - Abdominal pain upper [Recovering/Resolving]
  - Injection site erythema [Recovering/Resolving]
  - Throat tightness [Not Recovered/Not Resolved]
  - Injection site swelling [Recovering/Resolving]

NARRATIVE: CASE EVENT DATE: 2019
